FAERS Safety Report 12596504 (Version 1)
Quarter: 2016Q3

REPORT INFORMATION
  Report Type: Spontaneous
  Country: RU (occurrence: RU)
  Receive Date: 20160727
  Receipt Date: 20160727
  Transmission Date: 20161109
  Serious: Yes (Hospitalization)
  Sender: FDA-Public Use
  Company Number: RU-ASTRAZENECA-2016SE74557

PATIENT
  Age: 76 Year
  Sex: Male

DRUGS (4)
  1. BRILINTA [Suspect]
     Active Substance: TICAGRELOR
     Indication: MYOCARDIAL INFARCTION
     Dosage: 90.0MG UNKNOWN
     Route: 048
     Dates: start: 201503
  2. BISOPROLOL [Concomitant]
     Active Substance: BISOPROLOL
     Dosage: DAILY
  3. PENTALGIN [Concomitant]
     Indication: PAIN
     Dosage: AS REQUIRED
  4. PRESTATIUM A [Concomitant]
     Dosage: DAILY

REACTIONS (2)
  - Angina unstable [Recovered/Resolved]
  - Headache [Not Recovered/Not Resolved]

NARRATIVE: CASE EVENT DATE: 201601
